FAERS Safety Report 14848822 (Version 1)
Quarter: 2018Q2

REPORT INFORMATION
  Report Type: Spontaneous
  Country: US (occurrence: US)
  Receive Date: 20180504
  Receipt Date: 20180504
  Transmission Date: 20180711
  Serious: No
  Sender: FDA-Public Use
  Company Number: US-SHIRE-US201816816

PATIENT
  Sex: Female

DRUGS (1)
  1. XIIDRA [Suspect]
     Active Substance: LIFITEGRAST
     Indication: DRY EYE
     Dosage: 1 DROP EACH EYE (BID)
     Route: 047
     Dates: start: 20180425

REACTIONS (7)
  - Instillation site pruritus [Unknown]
  - Vision blurred [Unknown]
  - Eye discharge [Unknown]
  - Instillation site reaction [Unknown]
  - Lacrimation increased [Unknown]
  - Instillation site erythema [Unknown]
  - Instillation site pain [Unknown]
